FAERS Safety Report 5762178-7 (Version None)
Quarter: 2008Q2

REPORT INFORMATION
  Report Type: 
  Country: None (occurrence: None)
  Receive Date: 20080604
  Receipt Date: 20080527
  Transmission Date: 20081010
  Serious: Yes (Disabling, Other)
  Sender: FDA-Public Use
  Company Number: 163-20785-08041479

PATIENT
  Age: 33 Year
  Sex: Male

DRUGS (7)
  1. THALOMID [Suspect]
     Indication: APHTHOUS STOMATITIS
     Dosage: 200 MG, 1 IN 1 D, ORAL; 100 MG, 1 IN 1 D, ORAL; 100MG-200MG, DAILY, ORAL
     Route: 048
     Dates: start: 20061204, end: 20080201
  2. THALOMID [Suspect]
     Indication: APHTHOUS STOMATITIS
     Dosage: 200 MG, 1 IN 1 D, ORAL; 100 MG, 1 IN 1 D, ORAL; 100MG-200MG, DAILY, ORAL
     Route: 048
     Dates: start: 20080228, end: 20080401
  3. THALOMID [Suspect]
     Indication: APHTHOUS STOMATITIS
     Dosage: 200 MG, 1 IN 1 D, ORAL; 100 MG, 1 IN 1 D, ORAL; 100MG-200MG, DAILY, ORAL
     Route: 048
     Dates: start: 20080422
  4. COMBIVIR [Concomitant]
  5. VIRAMUNE [Concomitant]
  6. DIAMOX (ACETAZOLAMIDE) [Concomitant]
  7. PREDNISONE [Concomitant]

REACTIONS (6)
  - CONDITION AGGRAVATED [None]
  - GENITAL ULCERATION [None]
  - INTRACRANIAL PRESSURE INCREASED [None]
  - MOUTH ULCERATION [None]
  - OPTIC NERVE CUPPING [None]
  - VISUAL FIELD DEFECT [None]
